FAERS Safety Report 16712861 (Version 3)
Quarter: 2019Q3

REPORT INFORMATION
  Report Type: Spontaneous
  Country: US (occurrence: US)
  Receive Date: 20190817
  Receipt Date: 20190827
  Transmission Date: 20191004
  Serious: No
  Sender: FDA-Public Use
  Company Number: US-ALEXION PHARMACEUTICALS INC.-A201912403

PATIENT
  Age: 49 Year
  Sex: Female
  Weight: 54.88 kg

DRUGS (2)
  1. STRENSIQ [Suspect]
     Active Substance: ASFOTASE ALFA
     Dosage: 1.5 MG/KG, SIX TIMES/WEEK
     Route: 058
     Dates: start: 201511
  2. STRENSIQ [Suspect]
     Active Substance: ASFOTASE ALFA
     Indication: HYPOPHOSPHATASIA
     Dosage: 1 MG/KG, SIX TIMES/WEEK
     Route: 058
     Dates: start: 201511

REACTIONS (5)
  - Injection site pain [Unknown]
  - Injection site scar [Unknown]
  - Fat tissue increased [Not Recovered/Not Resolved]
  - Injection site atrophy [Unknown]
  - Adverse event [Recovered/Resolved]
